FAERS Safety Report 5822515-1 (Version None)
Quarter: 2008Q3

REPORT INFORMATION
  Report Type: 
  Country: None (occurrence: None)
  Receive Date: 20080725
  Receipt Date: 20071213
  Transmission Date: 20090109
  Serious: No
  Sender: FDA-Public Use
  Company Number: US-AMGEN-KDL256754

PATIENT
  Sex: Male

DRUGS (20)
  1. EPOGEN [Suspect]
     Indication: ANAEMIA
     Dates: start: 20070511
  2. METFORMIN HCL [Concomitant]
  3. OMEPRAZOLE [Concomitant]
  4. ATORVASTATIN CALCIUM [Concomitant]
  5. HYDROCORTISONE [Concomitant]
  6. HYDROCORTISONE [Concomitant]
     Route: 054
  7. TRAZODONE HCL [Concomitant]
  8. LEVOTHYROXINE SODIUM [Concomitant]
  9. BACLOFEN [Concomitant]
  10. PROMETHAZINE [Concomitant]
  11. LISINOPRIL [Concomitant]
  12. MAGNESIUM OXIDE [Concomitant]
  13. LORATADINE [Concomitant]
  14. BISACODYL [Concomitant]
  15. IRON [Concomitant]
     Route: 048
  16. PHENYLEPHRINE [Concomitant]
  17. MIRALAX [Concomitant]
  18. FISH OIL [Concomitant]
  19. GEMFIBROZIL [Concomitant]
  20. DOXYCYCLINE HCL [Concomitant]

REACTIONS (3)
  - ABDOMINAL DISTENSION [None]
  - ABDOMINAL PAIN LOWER [None]
  - DIARRHOEA [None]
